FAERS Safety Report 14746964 (Version 2)
Quarter: 2018Q2

REPORT INFORMATION
  Report Type: Spontaneous
  Country: IT (occurrence: IT)
  Receive Date: 20180411
  Receipt Date: 20180627
  Transmission Date: 20180711
  Serious: Yes (Other)
  Sender: FDA-Public Use
  Company Number: IT-PFIZER INC-2018147379

PATIENT
  Age: 64 Year
  Sex: Female

DRUGS (2)
  1. FASLODEX [Concomitant]
     Active Substance: FULVESTRANT
     Indication: METAPLASTIC BREAST CARCINOMA
     Dosage: 500 MG, CYCLIC
     Dates: start: 20170420
  2. IBRANCE [Suspect]
     Active Substance: PALBOCICLIB
     Indication: METAPLASTIC BREAST CARCINOMA
     Dosage: 125 MG, 1X/DAY
     Dates: start: 20170420

REACTIONS (4)
  - Neutropenia [Recovering/Resolving]
  - Haematotoxicity [Recovering/Resolving]
  - Diarrhoea [Recovering/Resolving]
  - Mucosal inflammation [Recovering/Resolving]

NARRATIVE: CASE EVENT DATE: 20170422
